FAERS Safety Report 5904523-5 (Version None)
Quarter: 2008Q4

REPORT INFORMATION
  Report Type: 
  Country: None (occurrence: None)
  Receive Date: 20081001
  Receipt Date: 20080926
  Transmission Date: 20090506
  Serious: Yes (Hospitalization, Other)
  Sender: FDA-Public Use
  Company Number: US-ASTRAZENECA-2008UW11273

PATIENT
  Age: 20 Year
  Sex: Female
  Weight: 111.1 kg

DRUGS (6)
  1. SEROQUEL [Suspect]
     Indication: SCHIZOPHRENIA
     Route: 048
     Dates: start: 20000308, end: 20050101
  2. SEROQUEL [Suspect]
     Indication: ANXIETY
     Route: 048
     Dates: start: 20000308, end: 20050101
  3. ABILIFY [Concomitant]
     Dates: start: 20040101, end: 20050101
  4. RISPERDAL [Concomitant]
     Dates: start: 19990101, end: 20080101
  5. THORAZINE [Concomitant]
     Dates: start: 20070101, end: 20080101
  6. ZOLOFT [Concomitant]
     Dates: start: 19980101, end: 20080101

REACTIONS (5)
  - BLINDNESS [None]
  - DIABETES MELLITUS [None]
  - DIABETIC KETOACIDOSIS [None]
  - PANCREATITIS [None]
  - WEIGHT INCREASED [None]
